FAERS Safety Report 9324540 (Version 3)
Quarter: 2014Q1

REPORT INFORMATION
  Report Type: Spontaneous
  Country: US (occurrence: US)
  Receive Date: 20130603
  Receipt Date: 20140325
  Transmission Date: 20141002
  Serious: Yes (Hospitalization)
  Sender: FDA-Public Use
  Company Number: US-B.I. PHARMACEUTICALS,INC./RIDGEFIELD-2013-BI-15313BP

PATIENT
  Age: 71 Year
  Sex: Male
  Weight: 108 kg

DRUGS (7)
  1. PRADAXA [Suspect]
     Indication: PRODUCT USED FOR UNKNOWN INDICATION
     Dosage: 300 MG
     Route: 065
     Dates: start: 20110819, end: 20120503
  2. NOVOLOG [Concomitant]
     Route: 065
     Dates: start: 2004
  3. SOTALOL [Concomitant]
     Route: 065
  4. EXFORGE [Concomitant]
     Route: 065
     Dates: start: 2008
  5. FUROSEMIDE [Concomitant]
     Dosage: 40 MG
     Route: 065
  6. ASPIRIN [Concomitant]
     Dosage: 81 MG
     Route: 065
  7. PRILOSEC [Concomitant]
     Dosage: 20 MG
     Route: 065
     Dates: start: 2004

REACTIONS (3)
  - Gastrointestinal haemorrhage [Unknown]
  - Anaemia [Unknown]
  - Haematochezia [Recovered/Resolved]
